FAERS Safety Report 6384465-4 (Version None)
Quarter: 2009Q3

REPORT INFORMATION
  Report Type: 
  Country: None (occurrence: None)
  Receive Date: 20090928
  Receipt Date: 20090114
  Transmission Date: 20100115
  Serious: Yes (Hospitalization)
  Sender: FDA-Public Use
  Company Number: US-2009-00017

PATIENT
  Age: 56 Year
  Sex: Male

DRUGS (11)
  1. SIMVASTATIN [Suspect]
  2. CARVEDILOL [Concomitant]
  3. METOPROLOL SUCCINATE [Concomitant]
  4. FUROSEMIDE [Concomitant]
  5. TAMSULOSIN [Concomitant]
  6. SERTRALINE HCL [Concomitant]
  7. FLUDROCORTISONE [Concomitant]
  8. CLONIDINE [Concomitant]
  9. ESOMEPRAZOLE [Concomitant]
  10. CLOPIDOGREL [Concomitant]
  11. INSULIN GLARGINE [Concomitant]

REACTIONS (2)
  - DRUG INTERACTION [None]
  - RHABDOMYOLYSIS [None]
